FAERS Safety Report 8024827-2 (Version None)
Quarter: 2012Q1

REPORT INFORMATION
  Report Type: 
  Country: None (occurrence: None)
  Receive Date: 20120105
  Receipt Date: 20120103
  Transmission Date: 20120608
  Serious: Yes (Hospitalization, Other)
  Sender: FDA-Public Use
  Company Number: US-JNJFOC-20120100903

PATIENT
  Sex: Female
  Weight: 68.04 kg

DRUGS (5)
  1. MORPHINE [Suspect]
     Indication: BACK PAIN
     Route: 048
     Dates: start: 20111201
  2. VICODIN [Concomitant]
     Indication: PAIN
     Route: 048
     Dates: start: 20040101, end: 20111201
  3. DURAGESIC-100 [Suspect]
     Indication: KNEE ARTHROPLASTY
     Route: 062
     Dates: start: 20090101, end: 20111201
  4. DURAGESIC-100 [Suspect]
     Route: 062
     Dates: start: 20040101, end: 20090101
  5. MORPHINE [Suspect]
     Indication: KNEE ARTHROPLASTY
     Route: 048
     Dates: start: 20111201

REACTIONS (8)
  - AORTIC VALVE REPLACEMENT [None]
  - SOMNOLENCE [None]
  - BEDRIDDEN [None]
  - DIZZINESS [None]
  - BALANCE DISORDER [None]
  - NAUSEA [None]
  - HOSPITALISATION [None]
  - VOMITING [None]
